FAERS Safety Report 4359596-0 (Version None)
Quarter: 2004Q2

REPORT INFORMATION
  Report Type: 
  Country: None (occurrence: None)
  Receive Date: 20040512
  Receipt Date: 20040522
  Transmission Date: 20050107
  Serious: Yes (Other)
  Sender: FDA-Public Use
  Company Number: DE_040413453

PATIENT
  Age: 70 Year
  Sex: Female

DRUGS (4)
  1. FORTEO [Suspect]
     Indication: OSTEOPOROSIS
     Dosage: 20 UG/1 DAY
     Dates: start: 20040301, end: 20040422
  2. CALCIUM [Concomitant]
  3. VITAMIN D3 [Concomitant]
  4. ANALGETIC [Concomitant]

REACTIONS (5)
  - BACK PAIN [None]
  - INJECTION SITE ERYTHEMA [None]
  - POLIOMYELITIS [None]
  - SCIATICA [None]
  - SKIN DISCOLOURATION [None]
